FAERS Safety Report 16187677 (Version 1)
Quarter: 2019Q2

REPORT INFORMATION
  Report Type: Spontaneous
  Country: US (occurrence: US)
  Receive Date: 20190412
  Receipt Date: 20190412
  Transmission Date: 20190711
  Serious: No
  Sender: FDA-Public Use
  Company Number: US-ASTRAZENECA-2019SE42696

PATIENT
  Age: 84 Year
  Sex: Male
  Weight: 83 kg

DRUGS (3)
  1. VALTESSA [Concomitant]
  2. LOKELMA [Suspect]
     Active Substance: SODIUM ZIRCONIUM CYCLOSILICATE
     Indication: HYPOKALAEMIA
     Route: 048
     Dates: start: 201902
  3. STOOL SOFTENER (DOCUSATE) [Concomitant]
     Active Substance: DOCUSATE
     Indication: BOWEL MOVEMENT IRREGULARITY

REACTIONS (2)
  - Flatulence [Unknown]
  - Faeces hard [Unknown]

NARRATIVE: CASE EVENT DATE: 201902
